FAERS Safety Report 5363389-5 (Version None)
Quarter: 2007Q2

REPORT INFORMATION
  Report Type: 
  Country: None (occurrence: None)
  Receive Date: 20070620
  Receipt Date: 20070611
  Transmission Date: 20071010
  Serious: Yes (Hospitalization)
  Sender: FDA-Public Use
  Company Number: FR-BRISTOL-MYERS SQUIBB COMPANY-13812086

PATIENT
  Age: 32 Year
  Sex: Male
  Weight: 70 kg

DRUGS (5)
  1. VIDEX [Suspect]
     Route: 048
     Dates: start: 20061229
  2. NORVIR [Suspect]
     Route: 048
     Dates: start: 20061229
  3. EPIVIR [Suspect]
     Route: 048
     Dates: start: 20061229
  4. DARUNAVIR [Suspect]
     Route: 048
     Dates: start: 20061229
  5. RALTEGRAVIR POTASSIUM [Suspect]
     Route: 048
     Dates: start: 20061229

REACTIONS (2)
  - NEPHROLITHIASIS [None]
  - RENAL COLIC [None]
